FAERS Safety Report 6484476-4 (Version None)
Quarter: 2009Q4

REPORT INFORMATION
  Report Type: 
  Country: None (occurrence: None)
  Receive Date: 20091209
  Receipt Date: 20091130
  Transmission Date: 20100525
  Serious: Yes (Other)
  Sender: FDA-Public Use
  Company Number: PHHY2009NL52537

PATIENT
  Sex: Male

DRUGS (4)
  1. ZOMETA [Suspect]
     Dosage: 4 MG, UNK
     Dates: start: 20090810
  2. ZOMETA [Suspect]
     Dosage: 4 MG, UNK
     Dates: start: 20090915
  3. ZOMETA [Suspect]
     Dosage: 4 MG, UNK
     Dates: start: 20091013
  4. ZOMETA [Suspect]
     Dosage: 4 MG, UNK
     Dates: start: 20091112

REACTIONS (2)
  - CARDIAC FAILURE [None]
  - FLUID RETENTION [None]
